FAERS Safety Report 9344448 (Version 2)
Quarter: 2013Q2

REPORT INFORMATION
  Report Type: Report from Study
  Country: NZ (occurrence: NZ)
  Receive Date: 20130612
  Receipt Date: 20130626
  Transmission Date: 20140414
  Serious: Yes (Death, Hospitalization, Other)
  Sender: FDA-Public Use
  Company Number: PHHY2013NZ059541

PATIENT
  Age: 30 Year
  Sex: Male

DRUGS (6)
  1. CLOZARIL [Suspect]
     Dosage: 650 MG, UNK
     Dates: start: 20121205
  2. CLONAZEPAM [Concomitant]
     Indication: AGITATION
     Dosage: 2 MG, TID
     Route: 048
     Dates: start: 2012
  3. CITALOPRAM [Concomitant]
     Indication: DEPRESSION
     Dosage: 20 MG, OD
     Route: 048
     Dates: start: 201301
  4. OXYBUTYNIN [Concomitant]
     Indication: URINARY INCONTINENCE
     Dosage: 3 MG, BID
     Route: 048
     Dates: start: 201301
  5. DESMOPRESSIN [Concomitant]
     Indication: URINARY INCONTINENCE
     Dosage: UNK (EACH NOSTRILS NOCTE)
     Route: 045
  6. NICOTINE [Concomitant]
     Indication: NICOTINE DEPENDENCE
     Dosage: UNK (DAILY)

REACTIONS (2)
  - Cardiac disorder [Fatal]
  - Pharyngitis [Recovered/Resolved]
